FAERS Safety Report 4673365-3 (Version None)
Quarter: 2005Q2

REPORT INFORMATION
  Report Type: 
  Country: None (occurrence: None)
  Receive Date: 20050525
  Receipt Date: 20040503
  Transmission Date: 20051028
  Serious: Yes (Other)
  Sender: FDA-Public Use
  Company Number: PHBS2004BR15267

PATIENT
  Age: 47 Year
  Sex: Female
  Weight: 65 kg

DRUGS (1)
  1. STARLIX [Suspect]
     Dosage: 120 MG/DAY

REACTIONS (2)
  - BLINDNESS TRANSIENT [None]
  - MALAISE [None]
